FAERS Safety Report 23730984 (Version 1)
Quarter: 2024Q2

REPORT INFORMATION
  Report Type: Other
  Country: AU (occurrence: AU)
  Receive Date: 20240411
  Receipt Date: 20240411
  Transmission Date: 20240716
  Serious: Yes (Other)
  Sender: FDA-Public Use
  Company Number: AU-TOLMAR, INC.-24AU047584

PATIENT
  Sex: Male

DRUGS (3)
  1. ELIGARD [Suspect]
     Active Substance: LEUPROLIDE ACETATE
     Indication: Prostate cancer
     Dosage: 45 MILLIGRAM, Q 6 MONTH
  2. ELIGARD [Suspect]
     Active Substance: LEUPROLIDE ACETATE
     Indication: Prostate cancer
     Dosage: UNK
  3. UNSPECIFIED INGREDIENT [Suspect]
     Active Substance: UNSPECIFIED INGREDIENT
     Indication: Plasma cell myeloma
     Dosage: UNK

REACTIONS (2)
  - Plasma cell myeloma [Unknown]
  - Fatigue [Unknown]

NARRATIVE: CASE EVENT DATE: 20210101
